FAERS Safety Report 15245870 (Version 2)
Quarter: 2019Q1

REPORT INFORMATION
  Report Type: Spontaneous
  Country: JP (occurrence: JP)
  Receive Date: 20180806
  Receipt Date: 20190301
  Transmission Date: 20190417
  Serious: Yes (Death)
  Sender: FDA-Public Use
  Company Number: JP-CELGENEUS-JPN-20180801019

PATIENT
  Age: 77 Year
  Sex: Male

DRUGS (1)
  1. ISTODAX [Suspect]
     Active Substance: ROMIDEPSIN
     Indication: PERIPHERAL T-CELL LYMPHOMA UNSPECIFIED
     Dosage: UNKNOWN
     Route: 041
     Dates: start: 20180709, end: 20180730

REACTIONS (3)
  - Peripheral T-cell lymphoma unspecified [Fatal]
  - Respiratory failure [Fatal]
  - Hypotension [Unknown]

NARRATIVE: CASE EVENT DATE: 201807
